FAERS Safety Report 5789409-1 (Version None)
Quarter: 2008Q2

REPORT INFORMATION
  Report Type: 
  Country: None (occurrence: None)
  Receive Date: 20080626
  Receipt Date: 20080620
  Transmission Date: 20081010
  Serious: Yes (Hospitalization)
  Sender: FDA-Public Use
  Company Number: JP-AVENTIS-200811177JP

PATIENT
  Age: 84 Year
  Sex: Male
  Weight: 50 kg

DRUGS (3)
  1. LASIX [Suspect]
     Indication: BRONCHOPNEUMONIA
     Route: 048
     Dates: start: 20080301, end: 20080409
  2. CLARITHROMYCIN [Suspect]
     Indication: BRONCHOPNEUMONIA
     Route: 048
     Dates: start: 20080301, end: 20080409
  3. DIOVANE [Suspect]
     Indication: BRONCHOPNEUMONIA
     Route: 048
     Dates: start: 20080301, end: 20080409

REACTIONS (1)
  - INTERSTITIAL LUNG DISEASE [None]
